FAERS Safety Report 6641390-9 (Version None)
Quarter: 2010Q1

REPORT INFORMATION
  Report Type: 
  Country: None (occurrence: None)
  Receive Date: 20100317
  Receipt Date: 20100317
  Transmission Date: 20100710
  Serious: Yes (Death)
  Sender: FDA-Public Use
  Company Number: None

PATIENT
  Age: 55 Year
  Sex: Male

DRUGS (2)
  1. POLYETHYLENE GLYCOL 3350 [Suspect]
     Indication: BOWEL PREPARATION
     Dosage: 4000 ML ONCE OTHER
     Route: 050
     Dates: start: 20100111, end: 20100112
  2. POLYETHYLENE GLYCOL 3350 [Suspect]
     Indication: COLONOSCOPY
     Dosage: 4000 ML ONCE OTHER
     Route: 050
     Dates: start: 20100111, end: 20100112

REACTIONS (5)
  - CARDIAC ARREST [None]
  - HYPOTENSION [None]
  - NAUSEA [None]
  - NO THERAPEUTIC RESPONSE [None]
  - VOMITING [None]
